FAERS Safety Report 17145063 (Version 1)
Quarter: 2019Q4

REPORT INFORMATION
  Report Type: Spontaneous
  Country: US (occurrence: US)
  Receive Date: 20191212
  Receipt Date: 20191212
  Transmission Date: 20200122
  Serious: Yes (Other)
  Sender: FDA-Public Use
  Company Number: US-SA-2019SA340329

PATIENT
  Age: 48 Year

DRUGS (1)
  1. ASPERCREME WARMING NO MESS [Suspect]
     Active Substance: CAPSAICIN
     Dosage: UNK

REACTIONS (2)
  - Skin discolouration [Unknown]
  - Skin burning sensation [Unknown]

NARRATIVE: CASE EVENT DATE: 20191129
